FAERS Safety Report 9797069 (Version 1)
Quarter: 2014Q1

REPORT INFORMATION
  Report Type: Spontaneous
  Country: IT (occurrence: IT)
  Receive Date: 20140105
  Receipt Date: 20140105
  Transmission Date: 20141002
  Serious: Yes (Other)
  Sender: FDA-Public Use
  Company Number: IT-PFIZER INC-2013371353

PATIENT
  Age: 44 Year
  Sex: Male
  Weight: 84 kg

DRUGS (2)
  1. CISPLATINO TEVA [Suspect]
     Indication: LUNG NEOPLASM MALIGNANT
     Dosage: 160 MG PER DAY, CYCLIC
     Route: 041
     Dates: start: 20131202
  2. ETOPOSIDE [Suspect]
     Indication: LUNG NEOPLASM MALIGNANT
     Dosage: 200 MG PER DAY, CYCLIC
     Route: 042
     Dates: start: 20131202

REACTIONS (4)
  - Asthenia [Unknown]
  - Bronchospasm [Unknown]
  - Nausea [Unknown]
  - Dyspnoea [Unknown]
